FAERS Safety Report 8927477 (Version 1)
Quarter: 2012Q4

REPORT INFORMATION
  Report Type: 
  Country: FR (occurrence: FR)
  Receive Date: 20121127
  Receipt Date: 20121127
  Transmission Date: 20130627
  Serious: Yes (Hospitalization)
  Sender: FDA-Public Use
  Company Number: FR-009507513-1211FRA009035

PATIENT
  Age: 73 Year
  Sex: Male

DRUGS (9)
  1. INEGY [Suspect]
     Dosage: UNK
     Route: 048
  2. VISIPAQUE [Suspect]
     Indication: ARTERIOGRAM CORONARY
     Dosage: 320 mg, Once
     Route: 042
     Dates: start: 20120314, end: 20120314
  3. METHYCLOTHIAZIDE\TRIAMTERENE [Suspect]
     Dosage: 1 DF, qd
     Route: 048
  4. ALLOPURINOL [Concomitant]
  5. HYDROCORTISONE [Concomitant]
  6. PRAXILENE [Concomitant]
  7. LEVOTHYROX [Concomitant]
  8. STAGID [Concomitant]
  9. ASPEGIC [Concomitant]

REACTIONS (3)
  - Renal failure acute [Recovered/Resolved]
  - Cough [Recovered/Resolved]
  - Rhabdomyolysis [Recovered/Resolved]
